FAERS Safety Report 23976474 (Version 1)
Quarter: 2024Q2

REPORT INFORMATION
  Report Type: Spontaneous
  Country: DE (occurrence: DE)
  Receive Date: 20240614
  Receipt Date: 20240614
  Transmission Date: 20240716
  Serious: Yes (Other)
  Sender: FDA-Public Use
  Company Number: DE-AMGEN-DEUSP2024112712

PATIENT
  Sex: Male

DRUGS (3)
  1. RAVICTI [Suspect]
     Active Substance: GLYCEROL PHENYLBUTYRATE
     Indication: Allan-Herndon-Dudley syndrome
     Dosage: UNK UNK, QD, DOSES UPTO 8.17 GRAM PER SQUARE METRE
     Route: 065
  2. RAVICTI [Suspect]
     Active Substance: GLYCEROL PHENYLBUTYRATE
     Dosage: RESTARTED AFTER 3 WEEKS
     Route: 065
  3. SODIUM PHENYLBUTYRATE [Concomitant]
     Active Substance: SODIUM PHENYLBUTYRATE
     Indication: Allan-Herndon-Dudley syndrome
     Dosage: UNK UNK, QD, DOSES UP TO 460 MILLIGRAM/KILOGRAM
     Route: 065

REACTIONS (9)
  - Hepatotoxicity [Unknown]
  - Drug metabolite level high [Unknown]
  - Transaminases increased [Unknown]
  - Amino acid level decreased [Unknown]
  - Malaise [Unknown]
  - Pyrexia [Unknown]
  - Thyroid hormones decreased [Recovering/Resolving]
  - Decreased appetite [Unknown]
  - Off label use [Unknown]
